FAERS Safety Report 10905447 (Version 1)
Quarter: 2015Q1

REPORT INFORMATION
  Report Type: Spontaneous
  Country: US (occurrence: US)
  Receive Date: 20150311
  Receipt Date: 20150311
  Transmission Date: 20150721
  Serious: No
  Sender: FDA-Public Use
  Company Number: US-009507513-1503USA004788

PATIENT
  Age: 19 Year
  Sex: Female
  Weight: 52.15 kg

DRUGS (2)
  1. HYDROCODIN [Concomitant]
     Active Substance: DIHYDROCODEINE BITARTRATE
  2. NEXPLANON [Suspect]
     Active Substance: ETONOGESTREL
     Indication: CONTRACEPTION
     Dosage: 1 DF, (1 ROD FOR 3 YEARS)
     Route: 059
     Dates: start: 20140611

REACTIONS (4)
  - Amenorrhoea [Unknown]
  - Cyst [Unknown]
  - Genital infection bacterial [Unknown]
  - Reproductive tract disorder [Unknown]

NARRATIVE: CASE EVENT DATE: 20140611
